FAERS Safety Report 15702652 (Version 1)
Quarter: 2018Q4

REPORT INFORMATION
  Report Type: Spontaneous
  Country: US (occurrence: US)
  Receive Date: 20181126
  Receipt Date: 20181126
  Transmission Date: 20190205
  Serious: No
  Sender: FDA-Public Use
  Company Number: None

PATIENT
  Age: 67 Year
  Sex: Male

DRUGS (7)
  1. AZACITIDINE. [Concomitant]
     Active Substance: AZACITIDINE
  2. COLBETASOL [Concomitant]
  3. ALLOURPINOL [Concomitant]
  4. ONDANSETRON [Concomitant]
     Active Substance: ONDANSETRON
  5. SORAFENIB [Concomitant]
     Active Substance: SORAFENIB
  6. SORAFENIB [Suspect]
     Active Substance: SORAFENIB
     Indication: NEOPLASM MALIGNANT
     Route: 048
     Dates: start: 20180726
  7. GUAFENESIN [Concomitant]
     Active Substance: GUAIFENESIN

REACTIONS (1)
  - Blood bilirubin increased [None]

NARRATIVE: CASE EVENT DATE: 20180702
